FAERS Safety Report 5480427-X (Version None)
Quarter: 2007Q4

REPORT INFORMATION
  Report Type: 
  Country: None (occurrence: None)
  Receive Date: 20071004
  Receipt Date: 20071004
  Transmission Date: 20080405
  Serious: Yes (Life-Threatening)
  Sender: FDA-Public Use
  Company Number: None

PATIENT
  Age: 43 Year
  Sex: Female

DRUGS (2)
  1. PROAIR HFA [Suspect]
     Indication: ASTHMA
     Dosage: 90MCG INHALER  PRN  INHALED
     Route: 055
     Dates: start: 20070901
  2. PROAIR HFA [Suspect]
     Indication: DYSPNOEA
     Dosage: 90MCG INHALER  PRN  INHALED
     Route: 055
     Dates: start: 20070901

REACTIONS (2)
  - BRONCHIAL IRRITATION [None]
  - DRUG INEFFECTIVE [None]
